FAERS Safety Report 11109362 (Version 2)
Quarter: 2015Q2

REPORT INFORMATION
  Report Type: Report from Study
  Country: DE (occurrence: None)
  Receive Date: 20150511
  Receipt Date: 20150526
  Transmission Date: 20150821
  Serious: Yes (Death, Other)
  Sender: FDA-Public Use
  Company Number: B1004700B

PATIENT
  Sex: Male
  Weight: 65 kg

DRUGS (2)
  1. ABACAVIR SULFATE + LAMIVUDINE (ABACAVIR SULPHATE, LAMIVUDINE) UNKNOWN [Suspect]
     Active Substance: ABACAVIR SULFATE\LAMIVUDINE
     Indication: HIV INFECTION
     Dosage: 600/300 MG
     Route: 048
     Dates: start: 20140410
  2. DOLUTEGRAVIR (DOLUTEGRAVIR) UNKNOWN [Suspect]
     Active Substance: DOLUTEGRAVIR
     Indication: HIV INFECTION
     Dosage: 50 MG, 1D
     Route: 048
     Dates: start: 20140410

REACTIONS (2)
  - Anxiety disorder [None]
  - Acute pulmonary oedema [None]

NARRATIVE: CASE EVENT DATE: 20140819
